FAERS Safety Report 6436003-5 (Version None)
Quarter: 2009Q4

REPORT INFORMATION
  Report Type: 
  Country: None (occurrence: None)
  Receive Date: 20091111
  Receipt Date: 20091103
  Transmission Date: 20100525
  Serious: Yes (Other)
  Sender: FDA-Public Use
  Company Number: US-JNJFOC-20091101477

PATIENT
  Age: 13 Year
  Sex: Male
  Weight: 43.09 kg

DRUGS (2)
  1. CONCERTA [Suspect]
     Route: 048
     Dates: start: 20070101
  2. CONCERTA [Suspect]
     Indication: ATTENTION DEFICIT/HYPERACTIVITY DISORDER
     Route: 048
     Dates: start: 20070101

REACTIONS (5)
  - ABNORMAL BEHAVIOUR [None]
  - ACTIVITIES OF DAILY LIVING IMPAIRED [None]
  - AGGRESSION [None]
  - DRUG DOSE OMISSION [None]
  - HOSTILITY [None]
